FAERS Safety Report 21763531 (Version 1)
Quarter: 2022Q4

REPORT INFORMATION
  Report Type: Spontaneous
  Country: GB (occurrence: None)
  Receive Date: 20221221
  Receipt Date: 20221221
  Transmission Date: 20230112
  Serious: Yes (Other)
  Sender: FDA-Public Use
  Company Number: 2022A407438

PATIENT
  Age: 75 Year
  Sex: Female
  Weight: 72 kg

DRUGS (16)
  1. ROSUVASTATIN [Suspect]
     Active Substance: ROSUVASTATIN
     Route: 065
     Dates: start: 20220914
  2. ATORVASTATIN [Concomitant]
     Active Substance: ATORVASTATIN
     Dosage: 1, EVERY DAY
     Route: 065
     Dates: start: 20220118, end: 20220914
  3. BETAHISTINE [Concomitant]
     Active Substance: BETAHISTINE
     Dosage: 1 , THREE TIMES A DAY
     Route: 065
     Dates: start: 20220118
  4. BUTYLSCOPOLAMINE BROMIDE [Concomitant]
     Active Substance: BUTYLSCOPOLAMINE BROMIDE
     Dosage: 2, FOUR TIMES A DAY
     Route: 065
     Dates: start: 20211214
  5. CALCEOS [Concomitant]
     Active Substance: CALCIUM CARBONATE\CHOLECALCIFEROL
     Dosage: 1, EVERY DAY
     Route: 065
     Dates: start: 20220118
  6. CLOBETASONE BUTYRATE [Concomitant]
     Active Substance: CLOBETASONE BUTYRATE
     Dosage: FOR 7 - 10 DAYS, TWO TIMES A DAY
     Route: 065
     Dates: start: 20220929, end: 20221027
  7. COCODAMOL [Concomitant]
     Active Substance: ACETAMINOPHEN\CODEINE PHOSPHATE
     Dosage: TAKE 1 TABLET FOUR TIMES/DAY. DO NO...
     Route: 065
     Dates: start: 20220118
  8. FLUTICASONE PROPIONATE\FORMOTEROL FUMARATE [Concomitant]
     Active Substance: FLUTICASONE PROPIONATE\FORMOTEROL FUMARATE
     Dosage: 2, TWO TIMES A DAY
     Route: 065
     Dates: start: 20210910
  9. KETOPROFEN [Concomitant]
     Active Substance: KETOPROFEN
     Dosage: APPLY THREE TIMES DAILY ONLY FOR PA...
     Route: 065
     Dates: start: 20211214
  10. LANSOPRAZOLE [Concomitant]
     Active Substance: LANSOPRAZOLE
     Dosage: TAKE ONE ONCE DAILY
     Route: 065
     Dates: start: 20220118
  11. NITROFURANTOIN [Concomitant]
     Active Substance: NITROFURANTOIN
     Dosage: FOR 7 DAYS, 1, TWO TIMES A DAY
     Route: 065
     Dates: start: 20221101, end: 20221108
  12. OILATUM [Concomitant]
     Route: 065
     Dates: start: 20220118
  13. CALCIUM CARBONATE\SODIUM ALGINATE\SODIUM BICARBONATE [Concomitant]
     Active Substance: CALCIUM CARBONATE\SODIUM ALGINATE\SODIUM BICARBONATE
     Dosage: 2X5ML SPOON 4 TIMES/DAY, 10
     Route: 065
     Dates: start: 20211214
  14. PREDNISOLONE [Concomitant]
     Active Substance: PREDNISOLONE
     Dosage: FOR 5 DAYS, 8, EVERY DAY
     Route: 065
     Dates: start: 20220920, end: 20220925
  15. ROSUVASTATIN [Concomitant]
     Active Substance: ROSUVASTATIN
     Dosage: 1, EVERY DAY
     Route: 065
     Dates: start: 20220914, end: 20221202
  16. ALBUTEROL [Concomitant]
     Active Substance: ALBUTEROL
     Dosage: 2
     Route: 065
     Dates: start: 20210910

REACTIONS (3)
  - Dyspnoea [Recovered/Resolved]
  - Wheezing [Recovered/Resolved]
  - Asthma [Recovered/Resolved]

NARRATIVE: CASE EVENT DATE: 20220914
